FAERS Safety Report 12088052 (Version 2)
Quarter: 2016Q3

REPORT INFORMATION
  Report Type: Spontaneous
  Country: US (occurrence: US)
  Receive Date: 20160217
  Receipt Date: 20160707
  Transmission Date: 20161109
  Serious: No
  Sender: FDA-Public Use
  Company Number: US-ASTRAZENECA-2016SE13776

PATIENT
  Sex: Female

DRUGS (1)
  1. BRILINTA [Suspect]
     Active Substance: TICAGRELOR
     Indication: STENT PLACEMENT
     Dosage: 90.0MG UNKNOWN
     Route: 048

REACTIONS (6)
  - Product size issue [Unknown]
  - Dizziness [Unknown]
  - Product colour issue [Unknown]
  - Dyspnoea [Unknown]
  - Decreased appetite [Unknown]
  - Middle insomnia [Unknown]
